FAERS Safety Report 10697374 (Version 1)
Quarter: 2015Q1

REPORT INFORMATION
  Report Type: Spontaneous
  Country: US (occurrence: None)
  Receive Date: 20150107
  Receipt Date: 20150107
  Transmission Date: 20150721
  Serious: No
  Sender: FDA-Public Use
  Company Number: None

PATIENT
  Age: 32 Year
  Sex: Female

DRUGS (2)
  1. PROCRIT [Suspect]
     Active Substance: ERYTHROPOIETIN
     Indication: CHRONIC KIDNEY DISEASE
     Dosage: PROCRIT 40,000 U/ML QW SQ
     Route: 058
     Dates: start: 20140829
  2. PROCRIT [Suspect]
     Active Substance: ERYTHROPOIETIN
     Indication: ANAEMIA
     Dosage: PROCRIT 40,000 U/ML QW SQ
     Route: 058
     Dates: start: 20140829

REACTIONS (1)
  - Hypertension [None]

NARRATIVE: CASE EVENT DATE: 20141222
